FAERS Safety Report 5506551-0 (Version None)
Quarter: 2007Q4

REPORT INFORMATION
  Report Type: 
  Country: None (occurrence: None)
  Receive Date: 20071105
  Receipt Date: 20071031
  Transmission Date: 20080405
  Serious: Yes (Other)
  Sender: FDA-Public Use
  Company Number: B0493504A

PATIENT
  Age: 64 Year
  Sex: Male

DRUGS (10)
  1. AMOXICILLIN + CLAVULANATE POTASSIUM [Suspect]
     Indication: WOUND INFECTION
     Route: 048
     Dates: start: 20070726, end: 20070802
  2. METRONIDAZOLE [Suspect]
     Indication: WOUND INFECTION
     Dosage: 1200MG PER DAY
     Route: 048
     Dates: start: 20070726, end: 20070802
  3. WARFARIN SODIUM [Concomitant]
  4. SIMVASTATIN [Concomitant]
     Dosage: 40MG PER DAY
  5. ALLOPURINOL [Concomitant]
     Dosage: 300MG PER DAY
  6. CORACTEN [Concomitant]
     Dosage: 60MG PER DAY
  7. IRBESARTAN [Concomitant]
     Dosage: 150MG PER DAY
  8. ACETAMINOPHEN [Concomitant]
     Dosage: 4000MG PER DAY
  9. GAVISCON [Concomitant]
     Dosage: 40ML PER DAY
  10. DIGOXIN [Concomitant]
     Dosage: 250MCG PER DAY

REACTIONS (5)
  - ABDOMINAL PAIN [None]
  - HEPATITIS [None]
  - LIVER FUNCTION TEST ABNORMAL [None]
  - MALAISE [None]
  - VOMITING [None]
